FAERS Safety Report 10200186 (Version 3)
Quarter: 2014Q2

REPORT INFORMATION
  Report Type: Spontaneous
  Country: IT (occurrence: IT)
  Receive Date: 20140527
  Receipt Date: 20140604
  Transmission Date: 20141212
  Serious: Yes (Other)
  Sender: FDA-Public Use
  Company Number: IT-PFIZER INC-2014138822

PATIENT
  Age: 82 Year
  Sex: Male

DRUGS (3)
  1. ALPRAZOLAM [Suspect]
     Dosage: 25 GTT, DAILY
     Route: 048
     Dates: start: 20140411, end: 20140411
  2. CARDURA [Concomitant]
     Dosage: 2 MG, UNK
  3. SEROQUEL [Concomitant]
     Dosage: 25 MG, UNK

REACTIONS (4)
  - Head injury [Unknown]
  - Fall [Not Recovered/Not Resolved]
  - Hypertension [Unknown]
  - Oxygen saturation decreased [Unknown]
